FAERS Safety Report 7742429-X (Version None)
Quarter: 2011Q3

REPORT INFORMATION
  Report Type: 
  Country: None (occurrence: None)
  Receive Date: 20110907
  Receipt Date: 20110907
  Transmission Date: 20111222
  Serious: Yes (Hospitalization)
  Sender: FDA-Public Use
  Company Number: None

PATIENT
  Age: 45 Year
  Sex: Male
  Weight: 63.3 kg

DRUGS (11)
  1. CYMBALTA [Concomitant]
  2. AMBIEN [Concomitant]
  3. RITALIN [Concomitant]
  4. GABAPENTIN [Concomitant]
  5. DECITABINE [Suspect]
     Indication: COLORECTAL CANCER METASTATIC
     Dosage: DECITABINE
     Dates: start: 20110819
  6. DECITABINE [Suspect]
     Indication: COLORECTAL CANCER METASTATIC
     Dosage: DECITABINE
     Dates: start: 20110729
  7. DECITABINE [Suspect]
     Indication: COLORECTAL CANCER METASTATIC
     Dosage: DECITABINE
     Dates: start: 20110902
  8. ACTIQ [Concomitant]
  9. PANITUMUMAB 6MG/KG AMGEN PHARMACEUTICALS [Suspect]
     Indication: COLORECTAL CANCER METASTATIC
     Dosage: PANITUMUMAB
     Dates: start: 20110805, end: 20110826
  10. TRAZODONE HCL [Concomitant]
  11. SENNA-S [Concomitant]

REACTIONS (5)
  - PYREXIA [None]
  - HYPERHIDROSIS [None]
  - CULTURE WOUND POSITIVE [None]
  - HYPOTENSION [None]
  - BLOOD CULTURE POSITIVE [None]
